FAERS Safety Report 9334841 (Version 2)
Quarter: 2014Q1

REPORT INFORMATION
  Report Type: Spontaneous
  Country: US (occurrence: US)
  Receive Date: 20130606
  Receipt Date: 20140203
  Transmission Date: 20141002
  Serious: Yes (Hospitalization, Other)
  Sender: FDA-Public Use
  Company Number: US-ELI_LILLY_AND_COMPANY-US201305009061

PATIENT
  Age: 12 Year
  Sex: Male
  Weight: 69.84 kg

DRUGS (11)
  1. PROZAC [Suspect]
     Indication: AFFECTIVE DISORDER
     Dosage: 10 MG, QD
     Route: 048
     Dates: start: 20121108
  2. CATAPRES /00171101/ [Suspect]
     Indication: AFFECTIVE DISORDER
     Dosage: 0.2 MG, EACH EVENING
     Dates: start: 20120301
  3. CATAPRES /00171101/ [Suspect]
     Dosage: 0.1 MG, BID
     Route: 048
     Dates: start: 20130921
  4. DEPAKOTE [Suspect]
     Indication: AFFECTIVE DISORDER
     Dosage: 300 MG, BID
     Route: 048
     Dates: start: 20130621
  5. DEPAKOTE [Suspect]
     Dosage: 500 MG, BID
     Route: 048
  6. DEPAKOTE [Suspect]
     Dosage: 250 MG, BID
     Route: 048
     Dates: start: 20130921
  7. VYVANSE [Suspect]
     Indication: AFFECTIVE DISORDER
     Dosage: 40 MG, EACH EVENING
     Route: 048
     Dates: start: 20130321, end: 20130924
  8. VYVANSE [Suspect]
     Dosage: 20 MG, QD
     Route: 048
     Dates: start: 20130321, end: 20130924
  9. DESYREL [Suspect]
     Indication: AFFECTIVE DISORDER
     Dosage: 12.5 MG, EACH EVENING
     Route: 048
     Dates: start: 20130617
  10. THORAZINE /00011901/ [Suspect]
     Indication: AGITATION
     Dosage: 20 MG, TID
     Route: 048
     Dates: start: 20130326
  11. THORAZINE /00011901/ [Suspect]
     Indication: AGGRESSION
     Dosage: 25 MG, EVERY 8 HRS
     Route: 048
     Dates: start: 20130921

REACTIONS (6)
  - Affective disorder [Recovered/Resolved]
  - Affective disorder [Recovered/Resolved]
  - Aggression [Recovered/Resolved]
  - Suicidal ideation [Recovered/Resolved]
  - Off label use [Not Recovered/Not Resolved]
  - Drug dose omission [Recovered/Resolved]
